FAERS Safety Report 6330693-3 (Version None)
Quarter: 2009Q3

REPORT INFORMATION
  Report Type: 
  Country: None (occurrence: None)
  Receive Date: 20090827
  Receipt Date: 20090818
  Transmission Date: 20100115
  Serious: Yes (Other)
  Sender: FDA-Public Use
  Company Number: BR-BAYER-200920813LA

PATIENT
  Age: 41 Year
  Sex: Female
  Weight: 59 kg

DRUGS (3)
  1. AVELOX [Suspect]
     Indication: SINUSITIS
     Dosage: TOTAL DAILY DOSE: 400 MG  UNIT DOSE: 400 MG
     Route: 048
     Dates: start: 20090814, end: 20090814
  2. CABERGOLINE [Concomitant]
     Indication: BLOOD PROLACTIN INCREASED
     Dosage: HALF TABLET OER WEEK
     Route: 048
     Dates: start: 20020101
  3. PREDSIM [Concomitant]
     Indication: SINUSITIS
     Route: 048
     Dates: start: 20090814

REACTIONS (8)
  - ABDOMINAL PAIN UPPER [None]
  - ANXIETY [None]
  - DECREASED APPETITE [None]
  - DRY MOUTH [None]
  - INSOMNIA [None]
  - PALLOR [None]
  - TACHYCARDIA [None]
  - TREMOR [None]
